FAERS Safety Report 20806305 (Version 1)
Quarter: 2022Q2

REPORT INFORMATION
  Report Type: Report from Study
  Country: FR (occurrence: FR)
  Receive Date: 20220510
  Receipt Date: 20220510
  Transmission Date: 20220720
  Serious: Yes (Hospitalization)
  Sender: FDA-Public Use
  Company Number: FR-BRISTOL-MYERS SQUIBB COMPANY-BMS-2022-006932

PATIENT
  Age: 48 Year
  Sex: Female
  Weight: 77.1 kg

DRUGS (3)
  1. NIVOLUMAB [Suspect]
     Active Substance: NIVOLUMAB
     Indication: Thymoma
     Dosage: 240 MILLIGRAM, Q2WK
     Route: 042
     Dates: start: 20211201, end: 20211229
  2. NIVOLUMAB [Suspect]
     Active Substance: NIVOLUMAB
     Route: 042
     Dates: start: 20220209
  3. IPILIMUMAB [Suspect]
     Active Substance: IPILIMUMAB
     Indication: Thymoma
     Dosage: 78 MILLIGRAM, Q6WK
     Route: 042
     Dates: start: 20211201, end: 20211201

REACTIONS (1)
  - Troponin I increased [Recovered/Resolved]

NARRATIVE: CASE EVENT DATE: 20220112
